FAERS Safety Report 10244420 (Version 1)
Quarter: 2014Q2

REPORT INFORMATION
  Report Type: Spontaneous
  Country: US (occurrence: None)
  Receive Date: 20140616
  Receipt Date: 20140616
  Transmission Date: 20141212
  Serious: Yes (Hospitalization)
  Sender: FDA-Public Use
  Company Number: None

PATIENT
  Age: 37 Year
  Sex: Female
  Weight: 54.43 kg

DRUGS (12)
  1. ALEMTUZUMAB [Suspect]
     Indication: MULTIPLE SCLEROSIS
     Dosage: DAY1TO3 12MG QD 1V(041)
     Route: 042
     Dates: start: 20130916, end: 20130918
  2. SOLUMEDROL [Suspect]
     Dosage: DAY1TO3 1G QD  IV(041)
     Route: 042
     Dates: start: 20130916, end: 20130918
  3. CLONAZEPAM [Concomitant]
  4. PRILOSEC [Concomitant]
  5. PAROXETINE HCL [Concomitant]
  6. IBUPROFEN [Concomitant]
  7. ORAL PREDNISOLONE [Concomitant]
  8. VITAMIN D3 [Concomitant]
  9. CYANOCOBALAMINE (VITAMIN B-12) [Concomitant]
  10. FLINTSTONE PLUS IRON [Concomitant]
  11. IMMODIUM A-D [Concomitant]
  12. FOLATE [Concomitant]

REACTIONS (3)
  - Coombs positive haemolytic anaemia [None]
  - Pancytopenia [None]
  - Immune thrombocytopenic purpura [None]
